FAERS Safety Report 4763267-6 (Version None)
Quarter: 2005Q3

REPORT INFORMATION
  Report Type: 
  Country: None (occurrence: None)
  Receive Date: 20050908
  Receipt Date: 20050831
  Transmission Date: 20060218
  Serious: Yes (Other)
  Sender: FDA-Public Use
  Company Number: US-JNJFOC-20050701991

PATIENT
  Sex: Female
  Weight: 60.6 kg

DRUGS (12)
  1. REMICADE [Suspect]
     Route: 042
  2. REMICADE [Suspect]
     Route: 042
  3. REMICADE [Suspect]
     Indication: RHEUMATOID ARTHRITIS
     Dosage: RECEIVED 145-150 MG
     Route: 042
  4. PREDNISONE [Concomitant]
     Indication: RHEUMATOID ARTHRITIS
  5. VERAPAMIL [Concomitant]
     Route: 048
  6. RANITIDINE [Concomitant]
     Indication: DYSPEPSIA
  7. METHOTREXATE [Concomitant]
     Indication: RHEUMATOID ARTHRITIS
  8. PERCOCET [Concomitant]
  9. PERCOCET [Concomitant]
  10. TYLENOL W/ CODEINE NO. 3 [Concomitant]
     Dosage: PRN
  11. FOSAMAX [Concomitant]
     Indication: OSTEOPENIA
  12. CALAN [Concomitant]
     Indication: HYPERTENSION

REACTIONS (6)
  - BLOOD PRESSURE DECREASED [None]
  - CHILLS [None]
  - INFUSION RELATED REACTION [None]
  - PO2 DECREASED [None]
  - PYREXIA [None]
  - TREMOR [None]
